FAERS Safety Report 9725673 (Version 1)
Quarter: 2013Q4

REPORT INFORMATION
  Report Type: Spontaneous
  Country: US (occurrence: None)
  Receive Date: 20131202
  Receipt Date: 20131202
  Transmission Date: 20140711
  Serious: No
  Sender: FDA-Public Use
  Company Number: None

PATIENT
  Age: 58 Year
  Sex: Male
  Weight: 119.3 kg

DRUGS (1)
  1. SINGULAR [Suspect]
     Indication: UPPER RESPIRATORY TRACT CONGESTION
     Route: 048
     Dates: start: 20130824, end: 20130827

REACTIONS (2)
  - Night sweats [None]
  - Blood pressure increased [None]
